FAERS Safety Report 7203696-4 (Version None)
Quarter: 2010Q4

REPORT INFORMATION
  Report Type: 
  Country: None (occurrence: None)
  Receive Date: 20101230
  Receipt Date: 20101217
  Transmission Date: 20110411
  Serious: Yes (Other)
  Sender: FDA-Public Use
  Company Number: PHHY2010FR82453

PATIENT
  Age: 68 Year
  Sex: Female
  Weight: 70 kg

DRUGS (8)
  1. ACLASTA [Suspect]
     Indication: OSTEOPOROSIS POSTMENOPAUSAL
     Dosage: UNK
     Dates: start: 20101116
  2. SPIRIVA [Concomitant]
     Dosage: ONCE PER DAY
  3. SINGULAIR [Concomitant]
     Dosage: ONCE PER DAY
  4. BIPERIDYS [Concomitant]
     Dosage: THREE TIMES PER DAY
  5. AERIUS [Concomitant]
     Dosage: ONCE PER DAY
  6. SERETIDE [Concomitant]
     Dosage: THREE TIMES PER DAY
  7. MOXYDAR [Concomitant]
  8. OROCAL [Concomitant]

REACTIONS (8)
  - BACK DISORDER [None]
  - BACK PAIN [None]
  - EYE PAIN [None]
  - FATIGUE [None]
  - HEADACHE [None]
  - MUSCULOSKELETAL PAIN [None]
  - PAIN IN EXTREMITY [None]
  - PAIN IN JAW [None]
